FAERS Safety Report 16252567 (Version 1)
Quarter: 2019Q2

REPORT INFORMATION
  Report Type: Spontaneous
  Country: JP (occurrence: JP)
  Receive Date: 20190429
  Receipt Date: 20190429
  Transmission Date: 20190711
  Serious: Yes (Other)
  Sender: FDA-Public Use
  Company Number: JP-BAUSCH-BL-2019-012369

PATIENT
  Age: 59 Year
  Sex: Male

DRUGS (2)
  1. CLENAFIN TOPICAL SOLUTION 10% FOR NAIL [Suspect]
     Active Substance: EFINACONAZOLE
     Indication: PRODUCT USED FOR UNKNOWN INDICATION
     Dosage: FOR NAIL
     Route: 061
     Dates: start: 201507, end: 201508
  2. ASTAT (LANOCONAZOLE) [Suspect]
     Active Substance: LANOCONAZOLE
     Indication: PRODUCT USED FOR UNKNOWN INDICATION
     Route: 061

REACTIONS (2)
  - Skin infection [Unknown]
  - Dermatitis contact [Unknown]
